FAERS Safety Report 4805211-9 (Version None)
Quarter: 2005Q4

REPORT INFORMATION
  Report Type: 
  Country: None (occurrence: None)
  Receive Date: 20051018
  Receipt Date: 20051010
  Transmission Date: 20060501
  Serious: Yes (Life-Threatening, Hospitalization)
  Sender: FDA-Public Use
  Company Number: 2005-133399-NL

PATIENT
  Age: 32 Year
  Sex: Female

DRUGS (2)
  1. CHORIONIC GONADOTROPIN [Suspect]
     Indication: OVULATION INDUCTION
     Dosage: 5000 IU ONCE
  2. UROFOLLITROPIN [Suspect]
     Indication: INFERTILITY
     Dosage: 150 UL ALT

REACTIONS (28)
  - ABDOMINAL DISTENSION [None]
  - ALANINE AMINOTRANSFERASE INCREASED [None]
  - ASCITES [None]
  - ASPARTATE AMINOTRANSFERASE INCREASED [None]
  - BLOOD ALKALINE PHOSPHATASE INCREASED [None]
  - BLOOD BILIRUBIN INCREASED [None]
  - BREATH SOUNDS ABNORMAL [None]
  - CYANOSIS [None]
  - DEHYDRATION [None]
  - DISSEMINATED INTRAVASCULAR COAGULATION [None]
  - DYSPNOEA [None]
  - ELECTROLYTE IMBALANCE [None]
  - HEPATIC ENZYME INCREASED [None]
  - HEPATOMEGALY [None]
  - JAUNDICE [None]
  - NAUSEA [None]
  - OEDEMA PERIPHERAL [None]
  - OLIGURIA [None]
  - OVARIAN CYST [None]
  - OVARIAN CYST RUPTURED [None]
  - OVARIAN HYPERSTIMULATION SYNDROME [None]
  - PERCUSSION TEST ABNORMAL [None]
  - PERICARDIAL EFFUSION [None]
  - PLEURAL EFFUSION [None]
  - TACHYCARDIA [None]
  - THERAPY NON-RESPONDER [None]
  - UTERINE DISORDER [None]
  - VOMITING [None]
